FAERS Safety Report 5187410-2 (Version None)
Quarter: 2006Q4

REPORT INFORMATION
  Report Type: 
  Country: None (occurrence: None)
  Receive Date: 20061214
  Receipt Date: 20061205
  Transmission Date: 20070319
  Serious: Yes (Hospitalization)
  Sender: FDA-Public Use
  Company Number: 2006-06118

PATIENT
  Age: 66 Year
  Sex: Male

DRUGS (2)
  1. BACLOFEN [Suspect]
     Dosage: INTRATHECAL
     Route: 037
  2. AMIKACIN [Suspect]
     Dosage: INTRAVENOUS
     Route: 042

REACTIONS (2)
  - DRUG INTERACTION POTENTIATION [None]
  - NEUROMUSCULAR BLOCKADE [None]
